FAERS Safety Report 19498476 (Version 2)
Quarter: 2021Q4

REPORT INFORMATION
  Report Type: Spontaneous
  Country: JP (occurrence: JP)
  Receive Date: 20210706
  Receipt Date: 20211028
  Transmission Date: 20220304
  Serious: Yes (Hospitalization)
  Sender: FDA-Public Use
  Company Number: JP-UCBJ-CD202105876UCBPHAPROD

PATIENT
  Age: 5 Decade
  Weight: 74 kg

DRUGS (8)
  1. CIMZIA [Suspect]
     Active Substance: CERTOLIZUMAB PEGOL
     Indication: Rheumatoid arthritis
     Dosage: 400 MILLIGRAM, EV 2 WEEKS(QOW)
     Route: 058
     Dates: start: 20190813, end: 20200116
  2. PFIZER-BIONTECH COVID-19 VACCINE [Suspect]
     Active Substance: TOZINAMERAN
     Indication: Immunisation
  3. IGURATIMOD [Concomitant]
     Active Substance: IGURATIMOD
     Indication: Rheumatoid arthritis
     Dosage: 25 MILLIGRAM, 2X/DAY (BID)
     Route: 048
     Dates: start: 20200227
  4. LOXOPROFEN SODIUM [Concomitant]
     Active Substance: LOXOPROFEN SODIUM
     Indication: Rheumatoid arthritis
     Dosage: 60 MILLIGRAM, 2X/DAY (BID)
     Route: 048
     Dates: start: 20180816
  5. REBAMIPIDE [Concomitant]
     Active Substance: REBAMIPIDE
     Indication: Chronic gastritis
     Dosage: 100 MILLIGRAM, 2X/DAY (BID)
     Route: 048
     Dates: start: 20180816
  6. GASTER [Concomitant]
     Active Substance: FAMOTIDINE
     Indication: Chronic gastritis
     Route: 048
     Dates: start: 20181101
  7. KEVZARA [Concomitant]
     Active Substance: SARILUMAB
     Indication: Rheumatoid arthritis
     Route: 058
     Dates: start: 20210325
  8. AMLODIPINE BESYLATE [Concomitant]
     Active Substance: AMLODIPINE BESYLATE
     Indication: Hypertension
     Dosage: 5 MILLIGRAM, ONCE DAILY (QD)
     Route: 048
     Dates: start: 20201217

REACTIONS (4)
  - Anaphylactic shock [Recovered/Resolved]
  - Vaccination complication [Recovered/Resolved]
  - COVID-19 immunisation [Unknown]
  - Off label use [Unknown]

NARRATIVE: CASE EVENT DATE: 20210618
